APPROVED DRUG PRODUCT: CALCITRIOL
Active Ingredient: CALCITRIOL
Strength: 0.25MCG
Dosage Form/Route: CAPSULE;ORAL
Application: A203289 | Product #002 | TE Code: AB
Applicant: AMNEAL PHARMACEUTICALS
Approved: Jun 14, 2017 | RLD: No | RS: No | Type: RX